FAERS Safety Report 4550198-X (Version None)
Quarter: 2005Q1

REPORT INFORMATION
  Report Type: 
  Country: None (occurrence: None)
  Receive Date: 20050112
  Receipt Date: 20050105
  Transmission Date: 20050727
  Serious: Yes (Other)
  Sender: FDA-Public Use
  Company Number: US-GLAXOSMITHKLINE-A0539380A

PATIENT
  Age: 60 Year
  Sex: Female

DRUGS (2)
  1. NICORETTE [Suspect]
     Indication: SMOKING CESSATION THERAPY
     Route: 002
     Dates: start: 19950101
  2. NICORETTE [Suspect]
     Indication: SMOKING CESSATION THERAPY
     Dosage: 2MG FOUR TIMES PER DAY
     Route: 002
     Dates: start: 20050103

REACTIONS (3)
  - BREAST CANCER [None]
  - PRURITUS [None]
  - TOOTHACHE [None]
